FAERS Safety Report 7255808-4 (Version None)
Quarter: 2011Q1

REPORT INFORMATION
  Report Type: 
  Country: None (occurrence: None)
  Receive Date: 20110129
  Receipt Date: 20100830
  Transmission Date: 20110831
  Serious: No
  Sender: FDA-Public Use
  Company Number: US-ABBOTT-10P-163-0667534-00

PATIENT
  Age: 63 Year
  Sex: Male

DRUGS (16)
  1. ASA [Concomitant]
     Indication: PROPHYLAXIS
  2. ALBUTEROL [Concomitant]
     Indication: ASTHMA
     Dosage: 3 BREATHING TREATMENT DAILY
  3. PREDNISONE [Concomitant]
     Indication: RHEUMATOID ARTHRITIS
  4. PROTONIX [Concomitant]
     Indication: GASTROOESOPHAGEAL REFLUX DISEASE
  5. FISH OIL [Concomitant]
     Indication: PRODUCT USED FOR UNKNOWN INDICATION
  6. ADVAIR [Concomitant]
     Indication: ASTHMA
     Dosage: 500/50, 1 PUFF TWICE DAILY
  7. CALCIUM [Concomitant]
     Indication: PRODUCT USED FOR UNKNOWN INDICATION
  8. NASONEX [Concomitant]
     Indication: HYPERSENSITIVITY
     Dosage: 1 MIST EACH NARE TWICE A DAY
  9. CALCITONIN [Concomitant]
     Indication: OSTEOPENIA
     Dosage: NASAL SPRAY
  10. XYZAL [Concomitant]
     Indication: HYPERSENSITIVITY
  11. VIT D [Concomitant]
     Indication: PRODUCT USED FOR UNKNOWN INDICATION
  12. CENTRUM SILVER [Concomitant]
     Indication: VITAMIN SUPPLEMENTATION
     Dosage: DAILY
  13. HUMIRA [Suspect]
     Indication: RHEUMATOID ARTHRITIS
     Dates: start: 20100801
  14. LIPITOR [Concomitant]
     Indication: BLOOD CHOLESTEROL INCREASED
  15. AVAPRO [Concomitant]
     Indication: HYPERTENSION
  16. ESTEPRO [Concomitant]
     Indication: HYPERSENSITIVITY
     Dosage: 0.15% TWICE DAILY ONE EACH NOSTRIL

REACTIONS (1)
  - PAIN IN EXTREMITY [None]
